FAERS Safety Report 25520507 (Version 1)
Quarter: 2025Q3

REPORT INFORMATION
  Report Type: Spontaneous
  Country: EU (occurrence: EU)
  Receive Date: 20250704
  Receipt Date: 20250704
  Transmission Date: 20251020
  Serious: Yes (Hospitalization, Other)
  Sender: PFIZER
  Company Number: None

PATIENT
  Age: 66 Year
  Sex: Female
  Weight: 94 kg

DRUGS (3)
  1. DOXORUBICIN HYDROCHLORIDE [Suspect]
     Active Substance: DOXORUBICIN HYDROCHLORIDE
     Indication: Myxofibrosarcoma
     Route: 042
     Dates: start: 20250424, end: 20250515
  2. IFOSFAMIDE [Suspect]
     Active Substance: IFOSFAMIDE
     Indication: Myxofibrosarcoma
     Dosage: 5900 MG, 1X/DAY (FROM D1 TO D3 OF EACH CYCLE)
     Route: 042
     Dates: start: 20250424, end: 20250516
  3. MESNA [Suspect]
     Active Substance: MESNA
     Indication: Cystitis haemorrhagic
     Dosage: 5900 MG, 1X/DAY (FROM D1 TO D3 OF EACH CYCLE)
     Route: 042
     Dates: start: 20250424, end: 20250516

REACTIONS (2)
  - Fanconi syndrome [Recovered/Resolved]
  - Off label use [Unknown]

NARRATIVE: CASE EVENT DATE: 20250424
